FAERS Safety Report 5961135-5 (Version None)
Quarter: 2008Q4

REPORT INFORMATION
  Report Type: 
  Country: None (occurrence: None)
  Receive Date: 20081119
  Receipt Date: 20081103
  Transmission Date: 20090506
  Serious: Yes (Death)
  Sender: FDA-Public Use
  Company Number: 2008US004317

PATIENT
  Age: 59 Year
  Sex: Male

DRUGS (2)
  1. ALOXI [Suspect]
     Indication: PROPHYLAXIS OF NAUSEA AND VOMITING
     Dosage: 0.25 MG, INTRAVENOUS
     Route: 042
     Dates: start: 20070601
  2. GLEEVEC [Suspect]
     Indication: GASTRIC CANCER

REACTIONS (1)
  - GASTRIC CANCER [None]
